FAERS Safety Report 14609901 (Version 1)
Quarter: 2018Q1

REPORT INFORMATION
  Report Type: Spontaneous
  Country: FR (occurrence: FR)
  Receive Date: 20180307
  Receipt Date: 20180307
  Transmission Date: 20180509
  Serious: Yes (Hospitalization)
  Sender: FDA-Public Use
  Company Number: FR-PFIZER INC-2018089057

PATIENT
  Age: 69 Year
  Sex: Male
  Weight: 89 kg

DRUGS (9)
  1. ATORVASTATINE /01326101/ [Concomitant]
     Active Substance: ATORVASTATIN
     Indication: MYOCARDIAL ISCHAEMIA
     Dosage: 80 MG, 1X/DAY
     Route: 048
  2. KARDEGIC [Concomitant]
     Active Substance: ASPIRIN DL-LYSINE
     Indication: MYOCARDIAL ISCHAEMIA
     Dosage: 75 MG, 1X/DAY
     Route: 048
  3. BISOCE [Concomitant]
     Active Substance: BISOPROLOL
     Indication: MYOCARDIAL ISCHAEMIA
     Dosage: 1.25 MG, 1X/DAY
     Route: 048
  4. FLUOROURACILE ACCORD [Suspect]
     Active Substance: FLUOROURACIL
     Indication: LARYNGEAL SQUAMOUS CELL CARCINOMA
     Dosage: UNK
     Route: 042
     Dates: start: 20170927, end: 20170929
  5. EFIENT [Concomitant]
     Active Substance: PRASUGREL HYDROCHLORIDE
     Indication: MYOCARDIAL ISCHAEMIA
     Dosage: 10 MG, 1X/DAY
     Route: 048
  6. DOCETAXEL. [Suspect]
     Active Substance: DOCETAXEL
     Indication: LARYNGEAL SQUAMOUS CELL CARCINOMA
     Dosage: 120 MG, UNK
     Route: 042
     Dates: start: 20170927, end: 20170927
  7. ESOMEPRAZOLE [Concomitant]
     Active Substance: ESOMEPRAZOLE
     Dosage: 20 MG, 1X/DAY
     Route: 048
  8. RAMIPRIL. [Concomitant]
     Active Substance: RAMIPRIL
     Indication: MYOCARDIAL ISCHAEMIA
     Dosage: 2.5 MG, 1X/DAY
     Route: 048
  9. CISPLATINE MYLAN [Suspect]
     Active Substance: CISPLATIN
     Indication: LARYNGEAL SQUAMOUS CELL CARCINOMA
     Dosage: 150 MG, UNK
     Route: 042
     Dates: start: 20170927, end: 20170927

REACTIONS (5)
  - Febrile bone marrow aplasia [Recovered/Resolved]
  - Acute kidney injury [Recovered/Resolved]
  - Thrombocytopenia [Recovered/Resolved]
  - Enterocolitis [Recovered/Resolved]
  - Septic shock [Recovered/Resolved]

NARRATIVE: CASE EVENT DATE: 20171004
